FAERS Safety Report 24073003 (Version 3)
Quarter: 2024Q3

REPORT INFORMATION
  Report Type: Spontaneous
  Country: DE (occurrence: DE)
  Receive Date: 20240710
  Receipt Date: 20240722
  Transmission Date: 20241017
  Serious: Yes (Hospitalization, Other)
  Sender: ROCHE
  Company Number: None

PATIENT
  Age: 66 Year
  Sex: Female
  Weight: 70 kg

DRUGS (16)
  1. VALGANCICLOVIR [Suspect]
     Active Substance: VALGANCICLOVIR
     Indication: Opportunistic infection prophylaxis
     Route: 048
     Dates: start: 200811, end: 20090206
  2. CELLCEPT [Suspect]
     Active Substance: MYCOPHENOLATE MOFETIL
     Indication: Renal transplant
     Route: 048
     Dates: start: 200811, end: 20090209
  3. CELLCEPT [Suspect]
     Active Substance: MYCOPHENOLATE MOFETIL
     Indication: Immunosuppression
     Route: 048
     Dates: start: 20090217
  4. CYCLOSPORINE [Suspect]
     Active Substance: CYCLOSPORINE
     Indication: Renal transplant
     Dosage: 150 GIVEN IN MORNING AND 125 GIVEN IN EVENING
     Route: 048
  5. CYCLOSPORINE [Suspect]
     Active Substance: CYCLOSPORINE
     Indication: Immunosuppression
     Dosage: 225MG GIVEN IN MORNING AND 200 MG GIVEN IN EVENING
     Route: 048
     Dates: start: 200811
  6. SULFAMETHOXAZOLE\TRIMETHOPRIM [Suspect]
     Active Substance: SULFAMETHOXAZOLE\TRIMETHOPRIM
     Indication: Prophylaxis urinary tract infection
     Route: 048
     Dates: start: 20081223, end: 20090206
  7. RAMIPRIL [Suspect]
     Active Substance: RAMIPRIL
     Indication: Hypertension
     Route: 065
     Dates: start: 20081223, end: 20090206
  8. NOVALGIN (METAMIZOLE SODIUM) [Suspect]
     Active Substance: METAMIZOLE SODIUM
     Indication: Pain
     Route: 065
     Dates: start: 200811, end: 20090206
  9. TORSEMIDE [Concomitant]
     Active Substance: TORSEMIDE
     Indication: Hypertension
     Dosage: NUMBER OF SEPERATE DOSAGES REPORTED AS 2
     Route: 048
     Dates: start: 200811
  10. BISOPROLOL [Concomitant]
     Active Substance: BISOPROLOL\BISOPROLOL FUMARATE
     Indication: Tachycardia
     Route: 048
     Dates: start: 20081223
  11. FALITHROM [Concomitant]
     Active Substance: PHENPROCOUMON
     Indication: Venous thrombosis
     Dosage: NUMBER OF SEPERATE DOSAGES REPORTED AS 1
     Route: 048
     Dates: start: 20090130, end: 20090207
  12. PANTOPRAZOLE SODIUM [Concomitant]
     Active Substance: PANTOPRAZOLE SODIUM
     Indication: Prophylaxis against gastrointestinal ulcer
     Dosage: NUMBER OF SEPERATE DOSAGES REPORTED AS 1
     Route: 048
     Dates: start: 200811
  13. PREDNISOLONE [Concomitant]
     Active Substance: PREDNISOLONE
     Indication: Renal transplant
     Dosage: NUMBER OF SEPERATE DOSAGES REPORTED AS 1
     Route: 048
     Dates: start: 200811
  14. PREDNISOLONE [Concomitant]
     Active Substance: PREDNISOLONE
     Indication: Immunosuppression
  15. Locol [Concomitant]
     Indication: Cardiovascular event prophylaxis
     Route: 065
     Dates: start: 200811
  16. MCP [Concomitant]
     Active Substance: METOCLOPRAMIDE HYDROCHLORIDE
     Route: 065
     Dates: start: 200812, end: 20090213

REACTIONS (13)
  - Renal tubular disorder [Unknown]
  - Erythropenia [Recovered/Resolved]
  - Focal segmental glomerulosclerosis [Unknown]
  - Urinary tract infection pseudomonal [Recovered/Resolved]
  - Leukopenia [Recovered/Resolved]
  - Renal impairment [Unknown]
  - Oropharyngeal pain [Recovering/Resolving]
  - Nasopharyngitis [Recovering/Resolving]
  - Renal tubular atrophy [Unknown]
  - Cough [Recovering/Resolving]
  - Immunosuppressant drug level increased [Unknown]
  - Pancytopenia [Recovered/Resolved]
  - Pseudomonas infection [Recovered/Resolved]

NARRATIVE: CASE EVENT DATE: 20090206
